FAERS Safety Report 14627977 (Version 1)
Quarter: 2018Q1

REPORT INFORMATION
  Report Type: Spontaneous
  Country: US (occurrence: US)
  Receive Date: 20180312
  Receipt Date: 20180312
  Transmission Date: 20180509
  Serious: Yes (Other)
  Sender: FDA-Public Use
  Company Number: US-BIOGEN-2012BI005666

PATIENT
  Age: 66 Year
  Sex: Female

DRUGS (3)
  1. AVONEX [Suspect]
     Active Substance: INTERFERON BETA-1A
     Route: 030
     Dates: start: 2003
  2. AVONEX [Suspect]
     Active Substance: INTERFERON BETA-1A
     Route: 065
     Dates: start: 20130612
  3. AVONEX [Suspect]
     Active Substance: INTERFERON BETA-1A
     Indication: MULTIPLE SCLEROSIS
     Route: 030
     Dates: start: 19980101, end: 2003

REACTIONS (5)
  - Dysgraphia [Recovered/Resolved]
  - Multiple sclerosis relapse [Recovered/Resolved]
  - Intraductal proliferative breast lesion [Recovered/Resolved]
  - Depression [Recovered/Resolved]
  - Urinary incontinence [Not Recovered/Not Resolved]

NARRATIVE: CASE EVENT DATE: 201202
